FAERS Safety Report 23565002 (Version 1)
Quarter: 2024Q1

REPORT INFORMATION
  Report Type: Spontaneous
  Country: US (occurrence: US)
  Receive Date: 20240226
  Receipt Date: 20240226
  Transmission Date: 20240410
  Serious: Yes (Other)
  Sender: FDA-Public Use
  Company Number: US-BAYER-2024A027313

PATIENT
  Age: 49 Year
  Sex: Male

DRUGS (1)
  1. KOVALTRY [Suspect]
     Active Substance: ANTIHEMOPHILIC FACTOR, HUMAN RECOMBINANT
     Indication: Factor VIII deficiency
     Dosage: 3800 IU, BIW AND AS NEEDED FOR  BLEEDING
     Route: 042
     Dates: start: 202304

REACTIONS (1)
  - Haemorrhage [Recovered/Resolved]
